FAERS Safety Report 17156888 (Version 1)
Quarter: 2019Q4

REPORT INFORMATION
  Report Type: Spontaneous
  Country: US (occurrence: US)
  Receive Date: 20191120
  Receipt Date: 20191120
  Transmission Date: 20200122
  Serious: Yes (Other)
  Sender: FDA-Public Use
  Company Number: None

PATIENT
  Age: 76 Year
  Sex: Female
  Weight: 56.7 kg

DRUGS (7)
  1. FORTEO [Suspect]
     Active Substance: TERIPARATIDE
     Indication: FALL
     Dosage: ?          QUANTITY:INJECTION BY A PEN;OTHER ROUTE:INJECTION?
     Dates: start: 201609, end: 201809
  2. MEHOPROLOL [Concomitant]
  3. FIBER PRODUCTS [Concomitant]
  4. VITAMINS [Concomitant]
     Active Substance: VITAMINS
  5. FORTEO [Suspect]
     Active Substance: TERIPARATIDE
     Indication: FRACTURE
     Dosage: ?          QUANTITY:INJECTION BY A PEN;OTHER ROUTE:INJECTION?
     Dates: start: 201609, end: 201809
  6. FUROSEMIDE. [Concomitant]
     Active Substance: FUROSEMIDE
  7. PROLIA [Concomitant]
     Active Substance: DENOSUMAB

REACTIONS (1)
  - Tooth disorder [None]
